FAERS Safety Report 25282433 (Version 1)
Quarter: 2025Q2

REPORT INFORMATION
  Report Type: Spontaneous
  Country: US (occurrence: US)
  Receive Date: 20250508
  Receipt Date: 20250508
  Transmission Date: 20250717
  Serious: Yes (Other)
  Sender: AUROBINDO
  Company Number: US-MLMSERVICE-20250418-PI482952-00082-1

PATIENT
  Age: 69 Year
  Sex: Female

DRUGS (18)
  1. CARBOPLATIN [Suspect]
     Active Substance: CARBOPLATIN
     Indication: Lung adenocarcinoma stage IV
     Route: 065
  2. CARBOPLATIN [Suspect]
     Active Substance: CARBOPLATIN
     Indication: Metastases to central nervous system
  3. CARBOPLATIN [Suspect]
     Active Substance: CARBOPLATIN
     Indication: Metastases to spine
  4. CARBOPLATIN [Suspect]
     Active Substance: CARBOPLATIN
     Indication: Metastases to bone
  5. CARBOPLATIN [Suspect]
     Active Substance: CARBOPLATIN
     Indication: Malignant neoplasm progression
  6. PEMETREXED [Suspect]
     Active Substance: PEMETREXED
     Indication: Lung adenocarcinoma stage IV
     Route: 065
  7. PEMETREXED [Suspect]
     Active Substance: PEMETREXED
     Indication: Metastases to central nervous system
  8. PEMETREXED [Suspect]
     Active Substance: PEMETREXED
     Indication: Metastases to spine
  9. PEMETREXED [Suspect]
     Active Substance: PEMETREXED
     Indication: Metastases to bone
  10. PEMETREXED [Suspect]
     Active Substance: PEMETREXED
     Indication: Malignant neoplasm progression
  11. PHENYTOIN [Concomitant]
     Active Substance: PHENYTOIN
     Indication: Seizure
     Dosage: 200 MILLIGRAM, ONCE A DAY (SINCE CHILDHOOD, SHE WAS MAINTAINED ON 200 MG PHENYTOIN DAILY (WITH HIGHE
     Route: 065
  12. ETHOSUXIMIDE [Concomitant]
     Active Substance: ETHOSUXIMIDE
     Indication: Seizure
     Dosage: 500 MILLIGRAM, TWO TIMES A DAY
     Route: 065
  13. LEVETIRACETAM [Concomitant]
     Active Substance: LEVETIRACETAM
     Indication: Seizure
     Dosage: 1000 MILLIGRAM, TWO TIMES A DAY
     Route: 065
  14. OSIMERTINIB [Concomitant]
     Active Substance: OSIMERTINIB
     Indication: Lung adenocarcinoma stage IV
     Dosage: 160 MILLIGRAM, ONCE A DAY
     Route: 065
  15. OSIMERTINIB [Concomitant]
     Active Substance: OSIMERTINIB
     Indication: Metastases to central nervous system
     Dosage: 80 MILLIGRAM, ONCE A DAY
     Route: 065
  16. OSIMERTINIB [Concomitant]
     Active Substance: OSIMERTINIB
     Indication: Metastases to spine
  17. OSIMERTINIB [Concomitant]
     Active Substance: OSIMERTINIB
     Indication: Metastases to bone
  18. ESTRADIOL [Concomitant]
     Active Substance: ESTRADIOL
     Indication: Product used for unknown indication
     Route: 067

REACTIONS (4)
  - Cytopenia [Unknown]
  - Pulmonary embolism [Recovered/Resolved]
  - Decreased appetite [Unknown]
  - Fatigue [Unknown]
